FAERS Safety Report 9307872 (Version 1)
Quarter: 2013Q2

REPORT INFORMATION
  Report Type: Spontaneous
  Country: IT (occurrence: IT)
  Receive Date: 20130524
  Receipt Date: 20130524
  Transmission Date: 20140414
  Serious: Yes (Hospitalization)
  Sender: FDA-Public Use
  Company Number: IT-BRISTOL-MYERS SQUIBB COMPANY-18899666

PATIENT
  Age: 57 Year
  Sex: Female
  Weight: 84 kg

DRUGS (8)
  1. ETOPOSIDE [Suspect]
     Indication: HODGKIN^S DISEASE
     Dosage: LAST DOSE ON 6MAY13
     Route: 048
     Dates: start: 20130305
  2. BLEOMYCIN SULFATE [Suspect]
     Indication: HODGKIN^S DISEASE
     Dosage: LAST DOSE ON 6MAY13
     Route: 048
     Dates: start: 20130305
  3. CHLORAMBUCIL [Suspect]
     Indication: HODGKIN^S DISEASE
     Dosage: LAST DOSE ON 6MAY13
     Route: 048
     Dates: start: 20130305
  4. PROCARBAZINE HCL [Suspect]
     Indication: HODGKIN^S DISEASE
     Dosage: LAST DOSE ON 6MAY13
     Route: 048
     Dates: start: 20130305
  5. VINBLASTINE SULFATE [Suspect]
     Indication: HODGKIN^S DISEASE
     Dosage: LAST DOSE ON 6MAY13
     Route: 048
     Dates: start: 20130305
  6. PREDNISONE [Suspect]
     Indication: HODGKIN^S DISEASE
     Dosage: LAST DOSE ON 6MAY13
     Route: 048
     Dates: start: 20130305
  7. DOXORUBICIN HCL [Suspect]
     Indication: HODGKIN^S DISEASE
     Dosage: LAST DOSE ON 6MAY13
     Route: 048
     Dates: start: 20130305
  8. VINCRISTINE SULFATE [Suspect]
     Indication: HODGKIN^S DISEASE
     Dosage: LAST DOSE ON 6MAY13
     Route: 048
     Dates: start: 20130305

REACTIONS (2)
  - Hyperglycaemia [Recovered/Resolved with Sequelae]
  - Anaemia [Recovered/Resolved with Sequelae]
